FAERS Safety Report 4713321-X (Version None)
Quarter: 2005Q3

REPORT INFORMATION
  Report Type: 
  Country: None (occurrence: None)
  Receive Date: 20050713
  Receipt Date: 20050324
  Transmission Date: 20060218
  Serious: Yes (Other)
  Sender: FDA-Public Use
  Company Number: SER/8/3896

PATIENT
  Sex: Male

DRUGS (1)
  1. PAROXETINE HCL [Suspect]
     Dosage: 20MG PER DAY
     Route: 065
     Dates: start: 19970212, end: 20040101

REACTIONS (5)
  - AGGRESSION [None]
  - ILL-DEFINED DISORDER [None]
  - INJURY [None]
  - TRANCE [None]
  - WEIGHT INCREASED [None]
